FAERS Safety Report 9053763 (Version 1)
Quarter: 2013Q1

REPORT INFORMATION
  Report Type: Spontaneous
  Country: US (occurrence: None)
  Receive Date: 20130117
  Receipt Date: 20130117
  Transmission Date: 20140127
  Serious: Yes (Life-Threatening, Other)
  Sender: FDA-Public Use
  Company Number: 1543237

PATIENT
  Age: 59 Year
  Sex: Male
  Weight: 91 kg

DRUGS (5)
  1. NIPENT [Suspect]
     Indication: CHRONIC LYMPHOCYTIC LEUKAEMIA
     Dosage: 31.95 MG,  NOT REPORTED  ( UNKNOWN )?UNKNOWN?01/23/2012  -  06/18/2012  ( UNKINOWN )
     Dates: start: 20120123, end: 20120618
  2. RITUXIMAB [Suspect]
     Indication: CHRONIC LYMPHOCYTIC LEUKAEMIA
     Dosage: 4900  MG,  NOT  REPORTED,  UNKNOWN,  UNKNOWN?UNKNOWN?01/23/2012  -  06/18/2012  ( UNKNOWN )
     Dates: start: 20120123, end: 20120618
  3. ALEMTUZUMAB [Suspect]
     Indication: CHRONIC LYMPHOCYTIC LEUKAEMIA
     Dosage: 253  MG,  NOT  REPORTED  ( UNKNOWN )?UNKNOWN?08/20/2012  -  09/14/2012  ( UNKNOWN )?
     Dates: start: 20120820, end: 20120914
  4. CYCLOPHOSPHAMIDE [Suspect]
     Indication: CHRONIC LYMPHOCYTIC LEUKAEMIA
     Dosage: 5760  MG,  NOT  REPORTED,  UNKNOWN,  UNKNOWN?UNKNOWN?01/23/2012  -  06/18/2012  ( UNKNOWN )
     Dates: start: 20120123, end: 20120618
  5. PROCHLORPERAZINE [Concomitant]

REACTIONS (2)
  - Myelodysplastic syndrome [None]
  - Haematotoxicity [None]
